FAERS Safety Report 7360218-5 (Version None)
Quarter: 2011Q1

REPORT INFORMATION
  Report Type: 
  Country: None (occurrence: None)
  Receive Date: 20110307
  Receipt Date: 20110223
  Transmission Date: 20110831
  Serious: Yes (Disabling)
  Sender: FDA-Public Use
  Company Number: 2011AP000337

PATIENT
  Age: 58 Year
  Sex: Male

DRUGS (7)
  1. EMULSIFYING WAX (EMULSIFYING WAX) [Concomitant]
  2. PARAFFIN SOFT (PARAFFIN SOFT) [Concomitant]
  3. RAMIPRIL [Concomitant]
  4. AMLODIPINE BESYLATE [Suspect]
     Indication: PRODUCT USED FOR UNKNOWN INDICATION
     Dates: start: 20101004
  5. FEXOFENADINE HCL [Concomitant]
  6. PROPRANOLOL [Concomitant]
  7. FLOXACILLIN SODIUM [Concomitant]

REACTIONS (2)
  - BLISTER [None]
  - RASH MACULAR [None]
